FAERS Safety Report 7035723-1 (Version None)
Quarter: 2010Q4

REPORT INFORMATION
  Report Type: 
  Country: None (occurrence: None)
  Receive Date: 20101008
  Receipt Date: 20101005
  Transmission Date: 20110411
  Serious: Yes (Hospitalization)
  Sender: FDA-Public Use
  Company Number: FR-BRISTOL-MYERS SQUIBB COMPANY-15322647

PATIENT
  Age: 60 Year
  Sex: Male

DRUGS (3)
  1. VIDEX [Suspect]
     Indication: HIV INFECTION
     Dosage: STOPPED:2001,AGAIN INITIATED 2004-MAY10,DOSAGE:2DAYS/WK
     Dates: start: 19960101
  2. TRUVADA [Suspect]
     Indication: HIV INFECTION
     Dosage: STOPPED:2001,AGAIN INITIATED 2004-MAY10,DOSAGE:2DAYS/WK
     Dates: start: 19960101
  3. VIRAMUNE [Suspect]
     Indication: HIV INFECTION
     Dosage: STOPPED:2001,AGAIN INITIATED 2004-MAY10,DOSAGE:2DAYS/WK
     Dates: start: 19960101

REACTIONS (1)
  - ATRIAL FIBRILLATION [None]
